FAERS Safety Report 11415027 (Version 3)
Quarter: 2016Q1

REPORT INFORMATION
  Report Type: Report from Study
  Country: FR (occurrence: FR)
  Receive Date: 20150825
  Receipt Date: 20160219
  Transmission Date: 20160525
  Serious: Yes (Hospitalization, Other)
  Sender: FDA-Public Use
  Company Number: PHHY2015FR082344

PATIENT
  Age: 69 Year
  Sex: Male
  Weight: 70 kg

DRUGS (12)
  1. CERTICAN [Suspect]
     Active Substance: EVEROLIMUS
     Indication: IMMUNOSUPPRESSANT DRUG THERAPY
     Dosage: 4 MG, QD
     Route: 048
     Dates: start: 20130810, end: 20130917
  2. CERTICAN [Suspect]
     Active Substance: EVEROLIMUS
     Dosage: 2 MG, QD
     Route: 048
     Dates: start: 20150704
  3. CORTANCYL [Concomitant]
     Active Substance: PREDNISONE
     Dosage: 17.5 MG, QD
     Route: 065
     Dates: start: 20140830, end: 20140915
  4. MYFORTIC [Suspect]
     Active Substance: MYCOPHENOLATE SODIUM
     Indication: IMMUNOSUPPRESSANT DRUG THERAPY
     Dosage: 1440 MG, QD
     Route: 065
     Dates: start: 20121218, end: 20150703
  5. CERTICAN [Suspect]
     Active Substance: EVEROLIMUS
     Dosage: 3 MG, QD
     Route: 048
     Dates: start: 20130918, end: 20150703
  6. CORTANCYL [Concomitant]
     Active Substance: PREDNISONE
     Indication: IMMUNOSUPPRESSANT DRUG THERAPY
     Dosage: 20 MG, QD
     Route: 065
     Dates: start: 20140425, end: 20140829
  7. CORTANCYL [Concomitant]
     Active Substance: PREDNISONE
     Dosage: 12.5 MG, QD
     Route: 065
     Dates: start: 20141002, end: 20141015
  8. CERTICAN [Suspect]
     Active Substance: EVEROLIMUS
     Indication: PROPHYLAXIS AGAINST TRANSPLANT REJECTION
     Dosage: 5 MG, QD
     Route: 048
     Dates: start: 20130330, end: 20130809
  9. CORTANCYL [Concomitant]
     Active Substance: PREDNISONE
     Dosage: 10 MG, QD
     Route: 065
     Dates: start: 20141016, end: 20150320
  10. CORTANCYL [Concomitant]
     Active Substance: PREDNISONE
     Dosage: 15 MG, QD
     Route: 065
     Dates: start: 20140916, end: 20141001
  11. CORTANCYL [Concomitant]
     Active Substance: PREDNISONE
     Dosage: 7.5 MG, QD
     Route: 065
     Dates: start: 20150321, end: 20151016
  12. CORTANCYL [Concomitant]
     Active Substance: PREDNISONE
     Dosage: 5 MG, QD
     Route: 065
     Dates: start: 20151017

REACTIONS (8)
  - Nodule [Unknown]
  - Cough [Unknown]
  - Alpha haemolytic streptococcal infection [Unknown]
  - Bronchitis [Recovered/Resolved]
  - Lung disorder [Recovered/Resolved]
  - Pyrexia [Unknown]
  - Hiatus hernia [Not Recovered/Not Resolved]
  - Liver transplant rejection [Recovering/Resolving]

NARRATIVE: CASE EVENT DATE: 20131025
